FAERS Safety Report 11167801 (Version 1)
Quarter: 2015Q2

REPORT INFORMATION
  Report Type: Spontaneous
  Country: US (occurrence: None)
  Receive Date: 20150515
  Receipt Date: 20150515
  Transmission Date: 20150821
  Serious: Yes (Other)
  Sender: FDA-Public Use
  Company Number: 2014018987

PATIENT
  Age: 71 Year
  Sex: Male

DRUGS (3)
  1. CIMZIA [Suspect]
     Active Substance: CERTOLIZUMAB PEGOL
     Indication: RHEUMATOID ARTHRITIS
     Dates: start: 2012
  2. CIMZIA [Suspect]
     Active Substance: CERTOLIZUMAB PEGOL
     Dates: start: 2012
  3. CORTISONE (CORTISONE ACETATE) [Suspect]
     Active Substance: CORTISONE ACETATE
     Indication: PRODUCT USED FOR UNKNOWN INDICATION
     Dosage: UNKNOWN (OVERDOSE)
     Dates: start: 201409, end: 201409

REACTIONS (1)
  - Candida infection [None]

NARRATIVE: CASE EVENT DATE: 201409
